FAERS Safety Report 8358302-2 (Version None)
Quarter: 2012Q2

REPORT INFORMATION
  Report Type: 
  Country: None (occurrence: None)
  Receive Date: 20120514
  Receipt Date: 20110418
  Transmission Date: 20120825
  Serious: No
  Sender: FDA-Public Use
  Company Number: US-ALEXION-A201100544

PATIENT
  Sex: Female

DRUGS (5)
  1. SOLIRIS [Suspect]
     Indication: PAROXYSMAL NOCTURNAL HAEMOGLOBINURIA
     Dosage: 900 MG, Q2W
     Route: 042
     Dates: start: 20100826
  2. FOLIC ACID [Concomitant]
     Dosage: UNK
  3. PREDNISONE [Concomitant]
     Dosage: 2.5 MG, QD
     Route: 048
  4. MULTI-VITAMIN [Concomitant]
     Dosage: UNK
  5. CALCIUM WITH VITAMIN D [Concomitant]

REACTIONS (7)
  - UPPER-AIRWAY COUGH SYNDROME [None]
  - NASOPHARYNGITIS [None]
  - COUGH [None]
  - PYREXIA [None]
  - PNEUMONIA [None]
  - THROAT IRRITATION [None]
  - SINUS HEADACHE [None]
